FAERS Safety Report 11972971 (Version 1)
Quarter: 2016Q1

REPORT INFORMATION
  Report Type: Spontaneous
  Country: CA (occurrence: CA)
  Receive Date: 20160128
  Receipt Date: 20160128
  Transmission Date: 20160526
  Serious: Yes (Hospitalization)
  Sender: FDA-Public Use
  Company Number: CA-JNJFOC-20160115460

PATIENT
  Age: 77 Year
  Sex: Male

DRUGS (1)
  1. INFLIXIMAB, RECOMBINANT [Suspect]
     Active Substance: INFLIXIMAB
     Indication: COLITIS ULCERATIVE
     Dosage: COMPLETED INFLIXIMAB INDUCTION THERAPY (0,2 AND 6 WEEKS AT 5 MG/KG)
     Route: 042

REACTIONS (8)
  - Cytomegalovirus infection [Unknown]
  - Hypoxia [Unknown]
  - Histoplasmosis [Unknown]
  - Diarrhoea haemorrhagic [Unknown]
  - Dyspnoea [Unknown]
  - Pulmonary alveolar haemorrhage [Unknown]
  - Rectal tenesmus [Unknown]
  - Histiocytosis haematophagic [Unknown]
